FAERS Safety Report 15954069 (Version 1)
Quarter: 2019Q1

REPORT INFORMATION
  Report Type: Spontaneous
  Country: NL (occurrence: NL)
  Receive Date: 20190212
  Receipt Date: 20190212
  Transmission Date: 20190417
  Serious: Yes (Hospitalization)
  Sender: FDA-Public Use
  Company Number: NL-ELI_LILLY_AND_COMPANY-NL201902000515

PATIENT
  Sex: Male

DRUGS (2)
  1. FLIXONASE [Concomitant]
     Active Substance: FLUTICASONE PROPIONATE
     Indication: PRODUCT USED FOR UNKNOWN INDICATION
     Dosage: UNK UNK, UNKNOWN
     Route: 065
  2. CIALIS [Suspect]
     Active Substance: TADALAFIL
     Indication: ERECTILE DYSFUNCTION
     Dosage: 20 MG, UNKNOWN
     Route: 050
     Dates: start: 20181212

REACTIONS (6)
  - Thermal burn [Recovering/Resolving]
  - Blister [Recovering/Resolving]
  - Penile swelling [Recovering/Resolving]
  - Pruritus generalised [Recovering/Resolving]
  - Skin irritation [Recovering/Resolving]
  - Genital burning sensation [Recovering/Resolving]
